FAERS Safety Report 18889678 (Version 2)
Quarter: 2021Q2

REPORT INFORMATION
  Report Type: Other
  Country: US (occurrence: US)
  Receive Date: 20210213
  Receipt Date: 20210408
  Transmission Date: 20210717
  Serious: Yes (Death, Other)
  Sender: FDA-Public Use
  Company Number: US-ROCHE-2769187

PATIENT
  Age: 61 Year
  Sex: Male

DRUGS (6)
  1. HERCEPTIN [Suspect]
     Active Substance: TRASTUZUMAB
     Indication: PROSTATE CANCER
  2. AVASTIN [Suspect]
     Active Substance: BEVACIZUMAB
     Indication: PROSTATE CANCER
     Dosage: INFUSE 1072MG (15MG/KG) INTRAVENOUSLY EVERY 28 DAY
     Route: 042
  3. AVASTIN [Suspect]
     Active Substance: BEVACIZUMAB
     Indication: BLADDER CANCER
     Dosage: INFUSE 1072 MG (15 MG/KG) INTRAVENOUSLY EVERY 28 DAY
     Route: 042
  4. HERCEPTIN [Suspect]
     Active Substance: TRASTUZUMAB
     Indication: BLADDER CANCER
     Dosage: INFUSE 104.6 MG INTRAVENOUSLY EVERY WEEK
     Route: 041
  5. AVASTIN [Suspect]
     Active Substance: BEVACIZUMAB
     Indication: AGRANULOCYTOSIS
  6. HERCEPTIN [Suspect]
     Active Substance: TRASTUZUMAB
     Indication: AGRANULOCYTOSIS

REACTIONS (3)
  - Death [Fatal]
  - Off label use [Unknown]
  - Intentional product use issue [Unknown]

NARRATIVE: CASE EVENT DATE: 20210119
